FAERS Safety Report 14149054 (Version 2)
Quarter: 2018Q1

REPORT INFORMATION
  Report Type: Report from Study
  Country: AR (occurrence: AR)
  Receive Date: 20171101
  Receipt Date: 20180119
  Transmission Date: 20180508
  Serious: Yes (Other)
  Sender: FDA-Public Use
  Company Number: PHHY2017AR112038

PATIENT
  Age: 27 Year
  Sex: Female

DRUGS (3)
  1. COSENTYX [Suspect]
     Active Substance: SECUKINUMAB
     Indication: PSORIATIC ARTHROPATHY
     Dosage: 150 MG, QW
     Route: 058
     Dates: start: 20170718
  2. COSENTYX [Suspect]
     Active Substance: SECUKINUMAB
     Dosage: 150 MG, Q2MO (EVERY 15 DAYS)
     Route: 058
     Dates: end: 20170929
  3. METHOTREXATE. [Suspect]
     Active Substance: METHOTREXATE
     Indication: PRODUCT USED FOR UNKNOWN INDICATION
     Route: 065

REACTIONS (7)
  - Blood pressure increased [Not Recovered/Not Resolved]
  - Anaemia [Recovering/Resolving]
  - Inappropriate schedule of drug administration [Unknown]
  - Syncope [Not Recovered/Not Resolved]
  - Pharyngitis [Not Recovered/Not Resolved]
  - Dizziness [Recovering/Resolving]
  - Heart rate increased [Not Recovered/Not Resolved]

NARRATIVE: CASE EVENT DATE: 201707
